FAERS Safety Report 23952820 (Version 2)
Quarter: 2024Q3

REPORT INFORMATION
  Report Type: Spontaneous
  Country: US (occurrence: US)
  Receive Date: 20240607
  Receipt Date: 20240722
  Transmission Date: 20241016
  Serious: No
  Sender: MERCK
  Company Number: US-009507513-2405USA009616

PATIENT
  Age: 17 Year
  Sex: Male

DRUGS (2)
  1. TEMODAR [Suspect]
     Active Substance: TEMOZOLOMIDE
     Indication: Astrocytoma malignant
     Dosage: UNK
     Route: 048
  2. BEVACIZUMAB [Concomitant]
     Active Substance: BEVACIZUMAB
     Indication: Symptomatic treatment
     Dosage: UNK

REACTIONS (1)
  - Product use in unapproved indication [Unknown]
